FAERS Safety Report 6027009-9 (Version None)
Quarter: 2009Q1

REPORT INFORMATION
  Report Type: 
  Country: None (occurrence: None)
  Receive Date: 20090105
  Receipt Date: 20081230
  Transmission Date: 20090719
  Serious: Yes (Other)
  Sender: FDA-Public Use
  Company Number: PHHY2008ES33435

PATIENT
  Age: 67 Year
  Sex: Male

DRUGS (4)
  1. VOLTAREN [Suspect]
     Indication: PSORIATIC ARTHROPATHY
     Dosage: 50 MG, BID
     Route: 048
  2. PRINIVIL [Suspect]
     Indication: HYPERTENSION
     Dosage: 20 G/DAILY
     Route: 048
  3. METHOTREXATE [Suspect]
     Indication: PSORIATIC ARTHROPATHY
     Dosage: 7.5 MG/DAILY
     Route: 048
  4. ENBREL [Suspect]
     Indication: PSORIATIC ARTHROPATHY
     Dosage: UNK
     Route: 030
     Dates: start: 20040101

REACTIONS (1)
  - LUNG NEOPLASM MALIGNANT [None]
